FAERS Safety Report 13084684 (Version 2)
Quarter: 2017Q1

REPORT INFORMATION
  Report Type: Spontaneous
  Country: NL (occurrence: NL)
  Receive Date: 20170104
  Receipt Date: 20170127
  Transmission Date: 20170428
  Serious: Yes (Life-Threatening)
  Sender: FDA-Public Use
  Company Number: NL-TEVA-725558ACC

PATIENT
  Age: 60 Year
  Sex: Female
  Weight: 71 kg

DRUGS (8)
  1. CARBOPLATINE INFUUS [Suspect]
     Active Substance: CARBOPLATIN
     Indication: OVARIAN CANCER
     Route: 042
     Dates: start: 20161109, end: 20161109
  2. NOVORAPID FLEXPEN INJVLST 100E/ML PEN 3ML [Concomitant]
     Dosage: 3 TIMES DAILY
     Route: 058
  3. PACLITAXEL. [Concomitant]
     Active Substance: PACLITAXEL
     Route: 042
  4. PARACETAMOL PCH TABLET 500MG [Concomitant]
     Dosage: 4 TIMES DAILY 2
     Route: 048
  5. FRAGMIN 7500 INJVLST 25.000IE/ML WWSP 0,3ML [Concomitant]
     Dosage: .6 ML DAILY; 2 TIMES DAILY 1
     Route: 058
  6. METOCLOPRAMIDE HCL PCH TABLET 10MG [Concomitant]
     Dosage: 30 MILLIGRAM DAILY; 3 TIMES DAILY 1 IF NEEDED
     Route: 048
  7. TRESIBA FLEXTOUCH INJVLST 100E/ML PEN 3ML [Concomitant]
     Dosage: 1 TIME DAILY
     Route: 058
  8. TEMAZEPAM CF CAPSULE 10MG [Concomitant]
     Dosage: 10 MILLIGRAM DAILY; 1 IF NEEDED
     Route: 048

REACTIONS (2)
  - Pulseless electrical activity [Recovered/Resolved with Sequelae]
  - Anaphylactic reaction [Recovered/Resolved]

NARRATIVE: CASE EVENT DATE: 20161109
